FAERS Safety Report 10581209 (Version 2)
Quarter: 2014Q4

REPORT INFORMATION
  Report Type: Report from Study
  Country: DE (occurrence: DE)
  Receive Date: 20141113
  Receipt Date: 20141113
  Transmission Date: 20150529
  Serious: Yes (Other)
  Sender: FDA-Public Use
  Company Number: DE-BAYER-2014-159197

PATIENT
  Age: 50 Year
  Sex: Male

DRUGS (1)
  1. BETAFERON [Suspect]
     Active Substance: INTERFERON BETA-1B
     Dosage: 250 ?G, UNK
     Dates: start: 2007

REACTIONS (7)
  - Injection site erythema [Recovered/Resolved with Sequelae]
  - Cellulitis [None]
  - Injection site discolouration [Recovered/Resolved with Sequelae]
  - Injection site induration [Recovered/Resolved with Sequelae]
  - Injection site reaction [Recovered/Resolved with Sequelae]
  - Injection site pain [Recovered/Resolved with Sequelae]
  - Soft tissue disorder [Recovered/Resolved with Sequelae]

NARRATIVE: CASE EVENT DATE: 20140914
